FAERS Safety Report 4710874-2 (Version None)
Quarter: 2005Q3

REPORT INFORMATION
  Report Type: 
  Country: None (occurrence: None)
  Receive Date: 20050711
  Receipt Date: 20050628
  Transmission Date: 20060218
  Serious: Yes (Hospitalization)
  Sender: FDA-Public Use
  Company Number: SE-GLAXOSMITHKLINE-B0386513A

PATIENT
  Age: 58 Year
  Sex: Male

DRUGS (4)
  1. ZYBAN [Suspect]
     Route: 048
     Dates: start: 20050408, end: 20050408
  2. VALERIANA [Concomitant]
  3. ANTIDEPRESSANT [Concomitant]
     Indication: DEPRESSION
  4. ALCOHOL [Concomitant]

REACTIONS (4)
  - AGGRESSION [None]
  - ANGER [None]
  - ANXIETY [None]
  - DRUG INTERACTION [None]
